FAERS Safety Report 17596660 (Version 1)
Quarter: 2020Q1

REPORT INFORMATION
  Report Type: Report from Study
  Country: None (occurrence: US)
  Receive Date: 20200330
  Receipt Date: 20200330
  Transmission Date: 20200409
  Serious: Yes (Other)
  Sender: FDA-Public Use
  Company Number: US-ABBVIE-20K-163-3342654-00

PATIENT
  Sex: Female

DRUGS (1)
  1. CREON [Suspect]
     Active Substance: PANCRELIPASE AMYLASE\PANCRELIPASE LIPASE\PANCRELIPASE PROTEASE
     Indication: PRODUCT USED FOR UNKNOWN INDICATION
     Route: 048

REACTIONS (8)
  - Tonsillectomy [Unknown]
  - Endoscopy upper gastrointestinal tract [Unknown]
  - Female sterilisation [Unknown]
  - Gallbladder operation [Unknown]
  - Hysterectomy [Unknown]
  - Hernia repair [Unknown]
  - Colonoscopy [Unknown]
  - Colonoscopy [Unknown]

NARRATIVE: CASE EVENT DATE: 1955
